FAERS Safety Report 6761242-3 (Version None)
Quarter: 2010Q2

REPORT INFORMATION
  Report Type: 
  Country: None (occurrence: None)
  Receive Date: 20100608
  Receipt Date: 20100527
  Transmission Date: 20101027
  Serious: Yes (Hospitalization)
  Sender: FDA-Public Use
  Company Number: PHHY2010FR34693

PATIENT
  Sex: Female

DRUGS (4)
  1. TAREG [Suspect]
     Indication: HYPERTENSION
     Dosage: 80 MG, UNK
     Route: 048
     Dates: start: 20090626, end: 20090630
  2. FLUDEX [Suspect]
     Indication: HYPERTENSION
     Dosage: UNK
     Route: 048
     Dates: start: 20090626, end: 20090630
  3. ZOLOFT [Suspect]
     Indication: DEPRESSION
     Dosage: ONCE PER DAY
     Route: 048
     Dates: start: 20090626, end: 20090630
  4. STABLON [Concomitant]
     Indication: DEPRESSION
     Dosage: 12.5 MG
     Route: 048

REACTIONS (6)
  - ASTHENIA [None]
  - COMA [None]
  - DECREASED APPETITE [None]
  - HEADACHE [None]
  - HYPONATRAEMIA [None]
  - LOSS OF CONSCIOUSNESS [None]
